FAERS Safety Report 8989903 (Version 3)
Quarter: 2013Q1

REPORT INFORMATION
  Report Type: Spontaneous
  Country: DE (occurrence: DE)
  Receive Date: 20121228
  Receipt Date: 20130204
  Transmission Date: 20140127
  Serious: Yes (Other)
  Sender: FDA-Public Use
  Company Number: DE-AMGEN-DEUSP2012082728

PATIENT
  Sex: Male
  Weight: 98 kg

DRUGS (3)
  1. XGEVA [Suspect]
     Indication: PRODUCT USED FOR UNKNOWN INDICATION
     Dosage: 120 UNK, ALL4WK
     Route: 058
     Dates: start: 20111102
  2. BICALUTAMIDE [Concomitant]
     Indication: PROSTATE CANCER
     Dosage: 50 MG, QD
     Route: 048
  3. ZOMETA [Concomitant]

REACTIONS (3)
  - Skin necrosis [Recovering/Resolving]
  - Abscess [Unknown]
  - Influenza like illness [Recovered/Resolved]
